FAERS Safety Report 17982747 (Version 3)
Quarter: 2020Q3

REPORT INFORMATION
  Report Type: Report from Study
  Country: CA (occurrence: CA)
  Receive Date: 20200706
  Receipt Date: 20200916
  Transmission Date: 20201103
  Serious: Yes (Other)
  Sender: FDA-Public Use
  Company Number: CA-ACCORD-188590

PATIENT
  Age: 45 Year
  Sex: Female

DRUGS (6)
  1. ERELZI [Suspect]
     Active Substance: ETANERCEPT-SZZS
     Indication: RHEUMATOID ARTHRITIS
     Dosage: 1 EVERY 1 WEEKS
     Route: 058
  2. SULFASALAZINE. [Concomitant]
     Active Substance: SULFASALAZINE
     Indication: PRODUCT USED FOR UNKNOWN INDICATION
  3. METHOTREXATE. [Suspect]
     Active Substance: METHOTREXATE
     Indication: PRODUCT USED FOR UNKNOWN INDICATION
  4. GOLD/GOLD KERATINATE/GOLD MONOSULFIDE/GOLD TRISULFIDE [Concomitant]
     Active Substance: GOLD
     Indication: PRODUCT USED FOR UNKNOWN INDICATION
     Route: 065
  5. ORENCIA [Suspect]
     Active Substance: ABATACEPT
     Indication: PRODUCT USED FOR UNKNOWN INDICATION
     Route: 065
  6. ARAVA [Concomitant]
     Active Substance: LEFLUNOMIDE
     Indication: PRODUCT USED FOR UNKNOWN INDICATION

REACTIONS (11)
  - Feeling hot [Recovered/Resolved]
  - Tooth infection [Recovered/Resolved]
  - Peripheral swelling [Recovered/Resolved]
  - Cold sweat [Recovered/Resolved]
  - Productive cough [Recovered/Resolved]
  - Drug intolerance [Unknown]
  - Erythema [Recovered/Resolved]
  - Skin induration [Recovered/Resolved]
  - Eating disorder [Recovered/Resolved]
  - Infection [Recovered/Resolved]
  - Abscess oral [Recovered/Resolved]
